FAERS Safety Report 17755914 (Version 1)
Quarter: 2020Q2

REPORT INFORMATION
  Report Type: Spontaneous
  Country: CN (occurrence: CN)
  Receive Date: 20200507
  Receipt Date: 20200507
  Transmission Date: 20200714
  Serious: Yes (Other)
  Sender: FDA-Public Use
  Company Number: CN-BAXTER-2020BAX009519

PATIENT
  Age: 47 Year
  Sex: Female
  Weight: 54.5 kg

DRUGS (4)
  1. 0.9% SODIUM CHLORIDE INJECTION [Suspect]
     Active Substance: SODIUM CHLORIDE
     Dosage: CYCLOPHOSPHAMIDE 0.4 G + 0.9 % SODIUM CHLORIDE
     Route: 041
     Dates: start: 20200327, end: 20200327
  2. ENDOXAN [Suspect]
     Active Substance: CYCLOPHOSPHAMIDE
     Dosage: CYCLOPHOSPHAMIDE + 0.9 % SODIUM CHLORIDE 100 ML
     Route: 041
     Dates: start: 20200327, end: 20200327
  3. ENDOXAN [Suspect]
     Active Substance: CYCLOPHOSPHAMIDE
     Indication: SYSTEMIC LUPUS ERYTHEMATOSUS
     Dosage: CYCLOPHOSPHAMIDE + 0.9 % SODIUM CHLORIDE 100 ML
     Route: 041
     Dates: start: 20200320, end: 20200320
  4. 0.9% SODIUM CHLORIDE INJECTION [Suspect]
     Active Substance: SODIUM CHLORIDE
     Indication: MEDICATION DILUTION
     Dosage: CYCLOPHOSPHAMIDE 0.6 G + 0.9 % SODIUM CHLORIDE
     Route: 041
     Dates: start: 20200320, end: 20200320

REACTIONS (1)
  - Bone marrow failure [Recovering/Resolving]

NARRATIVE: CASE EVENT DATE: 20200328
